FAERS Safety Report 7090833-8 (Version None)
Quarter: 2010Q4

REPORT INFORMATION
  Report Type: 
  Country: None (occurrence: None)
  Receive Date: 20101012
  Receipt Date: 20100617
  Transmission Date: 20110411
  Serious: Yes (Other)
  Sender: FDA-Public Use
  Company Number: 003109

PATIENT
  Age: 46 Year
  Sex: Female

DRUGS (3)
  1. KEPPRA [Suspect]
     Dosage: (500 MG QD), (2000 MG)
     Dates: end: 20100101
  2. KEPPRA [Suspect]
     Dosage: (500 MG QD), (2000 MG)
     Dates: start: 20091001
  3. SYNTHROID [Concomitant]

REACTIONS (5)
  - AGITATION [None]
  - ANXIETY [None]
  - BALANCE DISORDER [None]
  - FRUSTRATION [None]
  - SELF INJURIOUS BEHAVIOUR [None]
